FAERS Safety Report 10465563 (Version 2)
Quarter: 2014Q4

REPORT INFORMATION
  Report Type: Spontaneous
  Country: US (occurrence: US)
  Receive Date: 20140919
  Receipt Date: 20141028
  Transmission Date: 20150528
  Serious: Yes (Other)
  Sender: FDA-Public Use
  Company Number: US-TEVA-509732USA

PATIENT
  Age: 55 Year
  Sex: Female
  Weight: 61.29 kg

DRUGS (5)
  1. CHLOR-TRIMETON [Concomitant]
     Active Substance: CHLORPHENIRAMINE MALEATE
     Indication: ANTIALLERGIC THERAPY
  2. QNASL [Suspect]
     Active Substance: BECLOMETHASONE DIPROPIONATE
     Indication: COUGH
  3. QNASL [Suspect]
     Active Substance: BECLOMETHASONE DIPROPIONATE
     Indication: UPPER-AIRWAY COUGH SYNDROME
  4. LOSARTAN [Concomitant]
     Active Substance: LOSARTAN
     Indication: HYPERTENSION
  5. QNASL [Suspect]
     Active Substance: BECLOMETHASONE DIPROPIONATE
     Indication: HYPERSENSITIVITY
     Route: 045
     Dates: start: 20131011, end: 20140804

REACTIONS (2)
  - Epistaxis [Recovered/Resolved]
  - Nasal septum perforation [Not Recovered/Not Resolved]

NARRATIVE: CASE EVENT DATE: 20140804
